FAERS Safety Report 14441281 (Version 1)
Quarter: 2018Q1

REPORT INFORMATION
  Report Type: Spontaneous
  Country: US (occurrence: US)
  Receive Date: 20180125
  Receipt Date: 20180125
  Transmission Date: 20180509
  Serious: Yes (Hospitalization)
  Sender: FDA-Public Use
  Company Number: US-TEVA-2018-US-850243

PATIENT
  Age: 55 Year
  Sex: Female

DRUGS (13)
  1. EPINEPHRINE. [Suspect]
     Active Substance: EPINEPHRINE
     Indication: CARDIAC FAILURE ACUTE
     Dosage: 600 MICROG
     Route: 040
  2. WARFARIN [Concomitant]
     Active Substance: WARFARIN
     Route: 065
  3. PROTAMINE SULFATE. [Suspect]
     Active Substance: PROTAMINE SULFATE
     Dosage: 100 MG
     Route: 065
  4. CALCIUM CHLORIDE. [Suspect]
     Active Substance: CALCIUM CHLORIDE
     Indication: CARDIAC FAILURE ACUTE
     Dosage: 500 MG
     Route: 040
  5. METOPROLOL. [Concomitant]
     Active Substance: METOPROLOL
     Route: 065
  6. EPINEPHRINE. [Suspect]
     Active Substance: EPINEPHRINE
     Indication: CARDIAC FAILURE ACUTE
     Dosage: INFUSION RATE INCREASED TO 0.1 MICROG/KG/MIN
     Route: 040
  7. ASPIRIN. [Concomitant]
     Active Substance: ASPIRIN
     Route: 065
  8. VASOPRESSIN. [Suspect]
     Active Substance: VASOPRESSIN
     Indication: CARDIAC FAILURE ACUTE
     Dosage: 12 U
     Route: 040
  9. VASOPRESSIN. [Suspect]
     Active Substance: VASOPRESSIN
     Indication: CARDIAC FAILURE ACUTE
     Dosage: INFUSION RATE INCREASED TO 0.1 U/HOUR
     Route: 040
  10. PANTOPRAZOLE [Concomitant]
     Active Substance: PANTOPRAZOLE
     Route: 065
  11. NOREPINEPHRINE. [Suspect]
     Active Substance: NOREPINEPHRINE
     Indication: CARDIAC FAILURE ACUTE
     Dosage: STARTED AT AN UNSPECIFIED DOSE AND THEN THE INFUSION RATE INCREASED TO 0.1 MICROG/KG/MIN
     Route: 040
  12. LEVOTHYROXINE. [Concomitant]
     Active Substance: LEVOTHYROXINE
     Route: 065
  13. FERROUS SULFATE. [Concomitant]
     Active Substance: FERROUS SULFATE
     Route: 065

REACTIONS (3)
  - Ventricular hypokinesia [Recovered/Resolved]
  - Cardiac failure acute [Recovered/Resolved]
  - Arteriospasm coronary [Recovered/Resolved]
